FAERS Safety Report 6286602-9 (Version None)
Quarter: 2009Q3

REPORT INFORMATION
  Report Type: 
  Country: None (occurrence: None)
  Receive Date: 20090728
  Receipt Date: 20090716
  Transmission Date: 20100115
  Serious: Yes (Other)
  Sender: FDA-Public Use
  Company Number: PHHY2009FR29387

PATIENT
  Sex: Male

DRUGS (1)
  1. LEPONEX [Suspect]
     Indication: SCHIZOPHRENIA
     Dosage: 100 MG, TID

REACTIONS (3)
  - LEUKOPENIA [None]
  - LUNG NEOPLASM MALIGNANT [None]
  - NEUTROPENIA [None]
